FAERS Safety Report 24184773 (Version 1)
Quarter: 2024Q3

REPORT INFORMATION
  Report Type: Spontaneous
  Country: US (occurrence: US)
  Receive Date: 20240807
  Receipt Date: 20240807
  Transmission Date: 20241016
  Serious: Yes (Other)
  Sender: BRISTOL MYERS SQUIBB
  Company Number: US-BRISTOL-MYERS SQUIBB COMPANY-2024-124344

PATIENT
  Age: 68 Year
  Sex: Female
  Weight: 97.07 kg

DRUGS (1)
  1. ONUREG [Suspect]
     Active Substance: AZACITIDINE
     Indication: Acute myeloid leukaemia
     Dosage: FREQ: 2WKSON,2WKSOFF?UNITS: MG
     Route: 048

REACTIONS (1)
  - Acute myeloid leukaemia recurrent [Unknown]
